FAERS Safety Report 22624595 (Version 7)
Quarter: 2023Q4

REPORT INFORMATION
  Report Type: Spontaneous
  Country: US (occurrence: US)
  Receive Date: 20230621
  Receipt Date: 20231101
  Transmission Date: 20240110
  Serious: No
  Sender: FDA-Public Use
  Company Number: US-PFIZER INC-PV202300106575

PATIENT
  Age: 5 Year
  Sex: Female

DRUGS (4)
  1. GENOTROPIN [Suspect]
     Active Substance: SOMATROPIN
     Dosage: 0.4 MG, DAILY
  2. GENOTROPIN [Suspect]
     Active Substance: SOMATROPIN
     Dosage: 0.4MG ON MONDAY, WEDNESDAY AND FRIDAY
     Dates: start: 202305
  3. GENOTROPIN [Suspect]
     Active Substance: SOMATROPIN
     Dosage: 0.6MG ON TUESDAY AND THURSDAY
     Dates: start: 202305
  4. GENOTROPIN [Suspect]
     Active Substance: SOMATROPIN
     Dosage: 1.2 MG, DAILY

REACTIONS (5)
  - Wrong technique in device usage process [Unknown]
  - Product preparation issue [Unknown]
  - Device leakage [Unknown]
  - Needle issue [Unknown]
  - Device physical property issue [Unknown]
